FAERS Safety Report 19130207 (Version 2)
Quarter: 2021Q2

REPORT INFORMATION
  Report Type: Spontaneous
  Country: US (occurrence: US)
  Receive Date: 20210414
  Receipt Date: 20210421
  Transmission Date: 20210717
  Serious: Yes (Hospitalization, Other)
  Sender: FDA-Public Use
  Company Number: US-SUN PHARMACEUTICAL INDUSTRIES LTD-2021R1-290952

PATIENT
  Age: 40 Year
  Sex: Male

DRUGS (2)
  1. DIPHENHYDRAMINE. [Concomitant]
     Active Substance: DIPHENHYDRAMINE
     Indication: PRODUCT USED FOR UNKNOWN INDICATION
     Dosage: UNK
     Route: 065
  2. LOPERAMIDE [Suspect]
     Active Substance: LOPERAMIDE
     Indication: DRUG WITHDRAWAL SYNDROME
     Dosage: 2 MILLIGRAM, DAILY
     Route: 065

REACTIONS (7)
  - Cardiac arrest [Recovered/Resolved]
  - Ventricular tachycardia [Unknown]
  - Hyperthermia [Unknown]
  - Overdose [Unknown]
  - Electrocardiogram QT prolonged [Not Recovered/Not Resolved]
  - Mental status changes [Unknown]
  - Torsade de pointes [Recovered/Resolved]
